FAERS Safety Report 16586041 (Version 2)
Quarter: 2019Q3

REPORT INFORMATION
  Report Type: Spontaneous
  Country: US (occurrence: US)
  Receive Date: 20190717
  Receipt Date: 20190809
  Transmission Date: 20191004
  Serious: No
  Sender: FDA-Public Use
  Company Number: US-ASTRAZENECA-2019SE92912

PATIENT
  Age: 84 Year
  Sex: Female
  Weight: 79.4 kg

DRUGS (2)
  1. BYDUREON BCISE [Suspect]
     Active Substance: EXENATIDE
     Indication: BLOOD GLUCOSE ABNORMAL
     Route: 058
  2. BYDUREON BCISE [Suspect]
     Active Substance: EXENATIDE
     Indication: TYPE 2 DIABETES MELLITUS
     Route: 058

REACTIONS (6)
  - Circumstance or information capable of leading to medication error [Unknown]
  - Anaemia [Not Recovered/Not Resolved]
  - Product closure issue [Unknown]
  - Intentional product misuse [Recovered/Resolved]
  - Product closure removal difficult [Unknown]
  - Needle issue [Unknown]

NARRATIVE: CASE EVENT DATE: 2019
